FAERS Safety Report 21385906 (Version 5)
Quarter: 2024Q1

REPORT INFORMATION
  Report Type: Spontaneous
  Country: US (occurrence: US)
  Receive Date: 20220928
  Receipt Date: 20240305
  Transmission Date: 20240410
  Serious: Yes (Hospitalization)
  Sender: FDA-Public Use
  Company Number: US-Accord-279108

PATIENT
  Age: 77 Year
  Sex: Male
  Weight: 56.5 kg

DRUGS (26)
  1. GEMCITABINE HYDROCHLORIDE [Suspect]
     Active Substance: GEMCITABINE HYDROCHLORIDE
     Indication: Diffuse large B-cell lymphoma stage II
     Dosage: 1Q2W
     Route: 042
     Dates: start: 20220908
  2. OXALIPLATIN [Suspect]
     Active Substance: OXALIPLATIN
     Indication: Diffuse large B-cell lymphoma stage II
     Dosage: 1Q2W
     Route: 042
     Dates: start: 20220908, end: 20220908
  3. EPCORITAMAB [Suspect]
     Active Substance: EPCORITAMAB
     Indication: Diffuse large B-cell lymphoma stage II
     Dosage: PRIMING DOSE, SINGLE
     Route: 058
     Dates: start: 20220908, end: 20220908
  4. PREDNISONE [Concomitant]
     Active Substance: PREDNISONE
     Indication: Prophylaxis
     Dates: start: 20220908, end: 20220919
  5. DIPHENHYDRAMINE [Concomitant]
     Active Substance: DIPHENHYDRAMINE
     Indication: Premedication
     Route: 042
     Dates: start: 20220908, end: 20220916
  6. ACETAMINOPHEN [Concomitant]
     Active Substance: ACETAMINOPHEN
     Indication: Premedication
     Route: 048
     Dates: start: 20220908, end: 20220908
  7. DEXAMETHASONE [Concomitant]
     Active Substance: DEXAMETHASONE
     Dates: start: 20220908, end: 20220916
  8. ZOVIRAX [Concomitant]
     Active Substance: ACYCLOVIR
     Dates: start: 20220908
  9. AMIODARONE [Concomitant]
     Active Substance: AMIODARONE
     Dates: start: 20211028
  10. LIPITOR [Concomitant]
     Active Substance: ATORVASTATIN CALCIUM
     Dates: start: 202202
  11. COENZYME Q10 [Concomitant]
     Active Substance: DIETARY SUPPLEMENT\UBIDECARENONE
     Dates: start: 2017
  12. VOLTAREN [Concomitant]
     Active Substance: DICLOFENAC SODIUM
     Dates: start: 2021, end: 20230609
  13. MAGNESIUM CITRATE [Concomitant]
     Active Substance: MAGNESIUM CITRATE
     Dates: start: 2021
  14. VITAMINS [Concomitant]
     Active Substance: VITAMINS
     Dates: start: 202208
  15. SULFAMETHOXAZOLE\TRIMETHOPRIM [Concomitant]
     Active Substance: SULFAMETHOXAZOLE\TRIMETHOPRIM
     Dates: start: 202107, end: 20230607
  16. CARBOXYMETHYLCELLULOSE SODIUM [Concomitant]
     Active Substance: CARBOXYMETHYLCELLULOSE SODIUM
     Dosage: SOLUTION (EXCEPT SYRUP), 0.5 PERCENT
     Dates: start: 20200514
  17. ZARXIO [Concomitant]
     Active Substance: FILGRASTIM-SNDZ
     Dates: start: 20210909, end: 20230227
  18. HEPARIN [Concomitant]
     Active Substance: HEPARIN SODIUM
     Dates: start: 20220911, end: 20220914
  19. LEVOTHYROXINE [Concomitant]
     Active Substance: LEVOTHYROXINE\LEVOTHYROXINE SODIUM
     Dates: start: 20220816
  20. PANTOPRAZOLE [Concomitant]
     Active Substance: PANTOPRAZOLE
     Dates: start: 20160412
  21. SODIUM CHLORIDE [Concomitant]
     Active Substance: SODIUM CHLORIDE
     Dosage: SOLUTION (EXCEPT SYRUP), 0.9 PERCENT
     Dates: start: 20220911, end: 20220914
  22. ACETAMINOPHEN [Concomitant]
     Active Substance: ACETAMINOPHEN
     Dates: start: 20220917, end: 20220917
  23. ACYCLOVIR [Concomitant]
     Active Substance: ACYCLOVIR
     Dates: start: 20220917, end: 20220924
  24. BACTRIM [Concomitant]
     Active Substance: SULFAMETHOXAZOLE\TRIMETHOPRIM
     Dates: start: 20220912, end: 20220914
  25. TOCILIZUMAB [Concomitant]
     Active Substance: TOCILIZUMAB
     Dates: start: 20220918, end: 20220918
  26. EPCORITAMAB [Suspect]
     Active Substance: EPCORITAMAB
     Indication: Diffuse large B-cell lymphoma stage II
     Dosage: INTERMEDIATE DOSE: 0.8 MILLIGRAM, SINGLE
     Route: 058
     Dates: start: 20220916, end: 20220916

REACTIONS (2)
  - Cytokine release syndrome [Recovered/Resolved]
  - Sepsis [Recovered/Resolved]

NARRATIVE: CASE EVENT DATE: 20220911
